FAERS Safety Report 8412982-1 (Version None)
Quarter: 2012Q2

REPORT INFORMATION
  Report Type: 
  Country: None (occurrence: None)
  Receive Date: 20120605
  Receipt Date: 20120529
  Transmission Date: 20120825
  Serious: No
  Sender: FDA-Public Use
  Company Number: US-AMGEN-USASP2012033565

PATIENT
  Age: 32 Year
  Sex: Female

DRUGS (1)
  1. ENBREL [Suspect]
     Indication: ANKYLOSING SPONDYLITIS
     Dosage: 50 MG, QWK
     Dates: start: 20120519

REACTIONS (12)
  - FATIGUE [None]
  - EYE IRRITATION [None]
  - DYSGEUSIA [None]
  - DIARRHOEA [None]
  - DRY MOUTH [None]
  - GINGIVAL SWELLING [None]
  - AGEUSIA [None]
  - ANOSMIA [None]
  - HYPERHIDROSIS [None]
  - ARTHRALGIA [None]
  - VOMITING [None]
  - ABDOMINAL PAIN [None]
